FAERS Safety Report 9843211 (Version 1)
Quarter: 2013Q4

REPORT INFORMATION
  Report Type: Spontaneous
  Country: US (occurrence: None)
  Receive Date: 20131219
  Receipt Date: 20131219
  Transmission Date: 20140711
  Serious: Yes (Other)
  Sender: FDA-Public Use
  Company Number: 163-20785-13022950

PATIENT
  Age: 69 Year
  Sex: Male
  Weight: 88 kg

DRUGS (2)
  1. THALOMID (THALIDOMIDE) (200 MILLIGRAM, CAPSULES) [Suspect]
     Indication: PLASMA CELL MYELOMA
     Route: 048
     Dates: start: 20130122, end: 20130218
  2. DEXAMETHASONE(DEXAMETHASONE)(UNKNOWN) [Concomitant]

REACTIONS (1)
  - Deep vein thrombosis [None]
